FAERS Safety Report 24147417 (Version 1)
Quarter: 2024Q3

REPORT INFORMATION
  Report Type: Spontaneous
  Country: CN (occurrence: CN)
  Receive Date: 20240729
  Receipt Date: 20240729
  Transmission Date: 20241016
  Serious: Yes (Hospitalization)
  Sender: JOHNSON AND JOHNSON
  Company Number: CN-JNJFOC-20240760012

PATIENT
  Age: 71 Year
  Sex: Female
  Weight: 55 kg

DRUGS (1)
  1. CHILDRENS MOTRIN [Suspect]
     Active Substance: IBUPROFEN
     Indication: Antipyresis
     Route: 048
     Dates: start: 20240704

REACTIONS (6)
  - Chest discomfort [Unknown]
  - Dyspnoea [Recovering/Resolving]
  - Product administered to patient of inappropriate age [Unknown]
  - Pruritus [Recovering/Resolving]
  - Rash maculo-papular [Recovering/Resolving]
  - Urticaria [Unknown]

NARRATIVE: CASE EVENT DATE: 20240704
